FAERS Safety Report 5918632-8 (Version None)
Quarter: 2008Q4

REPORT INFORMATION
  Report Type: 
  Country: None (occurrence: None)
  Receive Date: 20081015
  Receipt Date: 20081009
  Transmission Date: 20090506
  Serious: Yes (Congenital Anomaly, Other)
  Sender: FDA-Public Use
  Company Number: PT-AVENTIS-200812679EU

PATIENT
  Age: 32 Year
  Sex: Female

DRUGS (3)
  1. LOVENOX [Suspect]
     Route: 058
     Dates: start: 20070913, end: 20080501
  2. BECOZYME                           /00727601/ [Concomitant]
  3. FOLICIL [Concomitant]

REACTIONS (5)
  - ABORTION INDUCED [None]
  - DRUG EXPOSURE DURING PREGNANCY [None]
  - ECTOPIC KIDNEY [None]
  - FEMUR FRACTURE [None]
  - GENE MUTATION [None]
